FAERS Safety Report 10086911 (Version 2)
Quarter: 2014Q2

REPORT INFORMATION
  Report Type: Spontaneous
  Country: FR (occurrence: FR)
  Receive Date: 20140418
  Receipt Date: 20140428
  Transmission Date: 20141212
  Serious: Yes (Hospitalization)
  Sender: FDA-Public Use
  Company Number: FR-PFIZER INC-2014105758

PATIENT
  Age: 46 Year
  Sex: Male

DRUGS (16)
  1. TRIATEC [Suspect]
     Indication: CARDIOMYOPATHY
     Dosage: UNK
     Route: 065
     Dates: start: 201312, end: 201401
  2. TRIATEC [Suspect]
     Dosage: UNK
     Route: 065
     Dates: start: 20140212, end: 20140224
  3. BISOCE [Concomitant]
     Dosage: UNK
     Dates: start: 201312
  4. KARDEGIC [Concomitant]
     Dosage: UNK
     Dates: start: 201312
  5. CRESTOR [Concomitant]
     Dosage: UNK
     Dates: start: 201312
  6. PLAVIX [Concomitant]
     Dosage: UNK
     Dates: start: 201312
  7. ALDACTONE [Concomitant]
     Dosage: UNK
     Dates: start: 201312
  8. RIFATER [Concomitant]
     Indication: TUBERCULOSIS
     Dosage: UNK
     Dates: start: 201401
  9. RIFATER [Concomitant]
     Indication: LOWER RESPIRATORY TRACT INFECTION BACTERIAL
  10. DEXAMBUTOL [Concomitant]
     Indication: TUBERCULOSIS
     Dosage: UNK
     Dates: start: 201401, end: 20140206
  11. DEXAMBUTOL [Concomitant]
     Indication: LOWER RESPIRATORY TRACT INFECTION BACTERIAL
  12. AUGMENTIN [Concomitant]
     Indication: TUBERCULOSIS
     Dosage: UNK
     Dates: start: 201401
  13. AUGMENTIN [Concomitant]
     Indication: LOWER RESPIRATORY TRACT INFECTION BACTERIAL
  14. AMAREL [Concomitant]
     Dosage: UNK
     Dates: start: 201401
  15. ATARAX [Concomitant]
     Dosage: UNK
     Dates: start: 201401
  16. LOVENOX [Concomitant]
     Dosage: UNK
     Dates: start: 201401

REACTIONS (6)
  - Drug reaction with eosinophilia and systemic symptoms [Recovering/Resolving]
  - Hepatocellular injury [Recovering/Resolving]
  - Cholestasis [Recovering/Resolving]
  - Pulmonary tuberculosis [Unknown]
  - Lower respiratory tract infection bacterial [Unknown]
  - Off label use [Unknown]
